FAERS Safety Report 9457291 (Version 1)
Quarter: 2013Q3

REPORT INFORMATION
  Report Type: Spontaneous
  Country: CA (occurrence: None)
  Receive Date: 20130812
  Receipt Date: 20130812
  Transmission Date: 20140515
  Serious: Yes (Hospitalization)
  Sender: FDA-Public Use
  Company Number: 2013AP007008

PATIENT
  Sex: Female

DRUGS (1)
  1. APO-AMOXI [Suspect]
     Route: 048

REACTIONS (2)
  - Pharyngeal oedema [None]
  - Dyspnoea [None]
